FAERS Safety Report 4982337-0 (Version None)
Quarter: 2006Q2

REPORT INFORMATION
  Report Type: 
  Country: None (occurrence: None)
  Receive Date: 20060419
  Receipt Date: 20060406
  Transmission Date: 20061013
  Serious: Yes (Hospitalization)
  Sender: FDA-Public Use
  Company Number: 2005US000919

PATIENT
  Age: 65 Year
  Sex: Female

DRUGS (19)
  1. PROGRAF [Suspect]
     Indication: PROPHYLAXIS AGAINST TRANSPLANT REJECTION
     Dosage: 4 MG, BID, ORAL
     Route: 048
     Dates: start: 20050623
  2. MYCOPHENOLATE MOFETIL [Suspect]
     Indication: PROPHYLAXIS AGAINST TRANSPLANT REJECTION
     Dosage: 1000 MG, BID, IV NOS; 2000.00 MG, BID, ORAL
     Route: 042
     Dates: start: 20050621
  3. MYCOPHENOLATE MOFETIL [Suspect]
     Indication: PROPHYLAXIS AGAINST TRANSPLANT REJECTION
     Dosage: 1000 MG, BID, IV NOS; 2000.00 MG, BID, ORAL
     Route: 042
     Dates: start: 20050627
  4. SOLU-MEDROL [Suspect]
     Indication: PROPHYLAXIS AGAINST TRANSPLANT REJECTION
     Dosage: 500.00 MG, TOTAL DOSE, IV NOS
     Route: 042
     Dates: start: 20050621
  5. ANTITHYMOCYTE IMMUNOGLOBULIN (ANTITHMYCOYTE IMMUNOGLOBULIN) [Suspect]
     Indication: PROPHYLAXIS AGAINST TRANSPLANT REJECTION
     Dosage: 100.00 MG, UID/QD, IV NOS
     Route: 042
  6. AMLODIPINE [Concomitant]
  7. ACETAMINOPHEN [Concomitant]
  8. DIPHENHYDRAMINE HYDROCHLORIDE [Concomitant]
  9. DOCUSATE SODIUM (DOCUSATE SODIUM) [Concomitant]
  10. DOLASETRON MESILATE (DOLASETRON MESILATE) [Concomitant]
  11. HYDROMORPHONE HCL [Concomitant]
  12. METOPROLOL SUCCINATE [Concomitant]
  13. MORPHINE [Concomitant]
  14. NYSTATIN [Concomitant]
  15. INSULIN [Concomitant]
  16. PANTOPRAZOLE (PANTOPRAZOEL) [Concomitant]
  17. SULFAMETHOXAZOLE + TRIMETHOPRIM [Concomitant]
  18. VALGANCICLOVIR HCL [Concomitant]
  19. REGLAN [Concomitant]

REACTIONS (6)
  - ANAEMIA [None]
  - DECREASED APPETITE [None]
  - DEEP VEIN THROMBOSIS [None]
  - HAEMORRHAGE [None]
  - ILIAC ARTERY THROMBOSIS [None]
  - NAUSEA [None]
